FAERS Safety Report 20761232 (Version 2)
Quarter: 2022Q2

REPORT INFORMATION
  Report Type: Spontaneous
  Country: NL (occurrence: NL)
  Receive Date: 20220428
  Receipt Date: 20220527
  Transmission Date: 20220721
  Serious: Yes (Other)
  Sender: FDA-Public Use
  Company Number: None

PATIENT
  Age: 71 Year
  Sex: Female
  Weight: 80 kg

DRUGS (4)
  1. DOXYCYCLINE [Suspect]
     Active Substance: DOXYCYCLINE
     Indication: Respiratory tract infection
     Dosage: 1 DOSAGE FORMS DAILY; 1X PER DAY , STRENGTH : 100 MG , THERAPY END DATE : ASKU , BRAND NAME NOT SPEC
     Dates: start: 20211210
  2. ROTIGOTINE/ NEUPRO [Concomitant]
     Dosage: PLASTER , THERAPY START DATE AND END DATE : ASKU , STRENGTH : 6MG/24HOUR
  3. CARBIDOPA\LEVODOPA [Concomitant]
     Active Substance: CARBIDOPA\LEVODOPA
     Dosage: THERAPY START DATE AND END DATE : ASKU , STRENGTH : 50/12.5MG  , BRAND NAME NOT SPECIFIED
  4. LEVOTHYROXINE [Concomitant]
     Active Substance: LEVOTHYROXINE
     Dosage: THERAPY START DATE AND END DATE : ASKU , BRAND NAME NOT SPECIFIED , STRENGTH : 13 UG

REACTIONS (1)
  - Epilepsy [Unknown]

NARRATIVE: CASE EVENT DATE: 20211217
